FAERS Safety Report 20489077 (Version 1)
Quarter: 2022Q1

REPORT INFORMATION
  Report Type: Spontaneous
  Country: NO (occurrence: NO)
  Receive Date: 20220218
  Receipt Date: 20220218
  Transmission Date: 20220423
  Serious: Yes (Hospitalization)
  Sender: FDA-Public Use
  Company Number: None

PATIENT
  Age: 25 Year
  Sex: Female
  Weight: 57 kg

DRUGS (3)
  1. AIMOVIG [Suspect]
     Active Substance: ERENUMAB-AOOE
     Indication: Migraine
     Dosage: 140 MG, Q4W (N02CD01)
     Route: 058
     Dates: start: 202006, end: 20211221
  2. MIRENA L [Concomitant]
     Indication: Contraception
     Dosage: 20 UG (USED FOR 22 MONTHS, G02BA03- PLASTIC COILS WITH PROGESTERONS-ONGOING TREATMENT)
     Route: 065
     Dates: start: 20200311
  3. MIRENA L [Concomitant]
     Indication: Endometriosis

REACTIONS (5)
  - Decreased appetite [Recovered/Resolved]
  - Diarrhoea [Unknown]
  - Weight decreased [Recovered/Resolved with Sequelae]
  - Nausea [Recovering/Resolving]
  - Constipation [Recovering/Resolving]

NARRATIVE: CASE EVENT DATE: 20200101
